FAERS Safety Report 24712316 (Version 1)
Quarter: 2024Q4

REPORT INFORMATION
  Report Type: Spontaneous
  Country: US (occurrence: None)
  Receive Date: 20241207
  Receipt Date: 20241207
  Transmission Date: 20250115
  Serious: Yes (Disabling)
  Sender: Public
  Company Number: None

PATIENT
  Age: 45 Year
  Sex: Male
  Weight: 83.25 kg

DRUGS (1)
  1. ESCITALOPRAM [Suspect]
     Active Substance: ESCITALOPRAM OXALATE
     Indication: Obsessive-compulsive disorder

REACTIONS (7)
  - Product use complaint [None]
  - Product communication issue [None]
  - Drug dependence [None]
  - Drug withdrawal syndrome [None]
  - Suicidal ideation [None]
  - Panic attack [None]
  - Product prescribing issue [None]

NARRATIVE: CASE EVENT DATE: 20241201
